FAERS Safety Report 13693615 (Version 2)
Quarter: 2017Q2

REPORT INFORMATION
  Report Type: Spontaneous
  Country: US (occurrence: US)
  Receive Date: 20170627
  Receipt Date: 20170630
  Transmission Date: 20170830
  Serious: Yes (Hospitalization, Other)
  Sender: FDA-Public Use
  Company Number: US-DRREDDYS-USA/USA/17/0091676

PATIENT
  Age: 40 Year
  Sex: Male

DRUGS (7)
  1. ATAZANAVIR [Interacting]
     Active Substance: ATAZANAVIR
     Indication: HIV INFECTION
     Route: 065
     Dates: start: 1993
  2. PREDNISONE. [Concomitant]
     Active Substance: PREDNISONE
     Indication: IMMUNOSUPPRESSANT DRUG THERAPY
     Route: 065
  3. TACROLIMUS. [Suspect]
     Active Substance: TACROLIMUS
     Indication: IMMUNOSUPPRESSANT DRUG THERAPY
     Route: 065
  4. RITONAVIR. [Interacting]
     Active Substance: RITONAVIR
     Indication: HIV INFECTION
     Route: 065
     Dates: start: 1993
  5. LAMIVUDINE/ZIDOVUDINE [Interacting]
     Active Substance: LAMIVUDINE\ZIDOVUDINE
     Dosage: IN THE EVENING
     Route: 065
     Dates: start: 1993
  6. MYCOPHENOLATE MOFETIL. [Concomitant]
     Active Substance: MYCOPHENOLATE MOFETIL
     Indication: IMMUNOSUPPRESSANT DRUG THERAPY
     Route: 065
  7. LAMIVUDINE/ZIDOVUDINE [Interacting]
     Active Substance: LAMIVUDINE\ZIDOVUDINE
     Indication: HIV INFECTION
     Dosage: IN THE MORNING
     Route: 065
     Dates: start: 1993

REACTIONS (7)
  - Product preparation error [Unknown]
  - Toxicity to various agents [Recovering/Resolving]
  - Malaise [Unknown]
  - Drug interaction [Unknown]
  - Acute kidney injury [Recovering/Resolving]
  - Headache [Unknown]
  - Diarrhoea [Unknown]
